FAERS Safety Report 7577726-4 (Version None)
Quarter: 2011Q2

REPORT INFORMATION
  Report Type: 
  Country: None (occurrence: None)
  Receive Date: 20110628
  Receipt Date: 20110622
  Transmission Date: 20111010
  Serious: Yes (Other)
  Sender: FDA-Public Use
  Company Number: US-PFIZER INC-2011138971

PATIENT
  Sex: Female
  Weight: 66 kg

DRUGS (1)
  1. AROMASIN [Suspect]
     Indication: BREAST CANCER
     Dosage: 25 MG, 1X/DAY
     Route: 048
     Dates: start: 20110501

REACTIONS (3)
  - PAIN IN EXTREMITY [None]
  - CARDIOVASCULAR DISORDER [None]
  - VEIN DISORDER [None]
